FAERS Safety Report 8780411 (Version 1)
Quarter: 2012Q4

REPORT INFORMATION
  Report Type: Spontaneous
  Country: US (occurrence: None)
  Receive Date: 20120905
  Receipt Date: 20120905
  Transmission Date: 20130627
  Serious: No
  Sender: FDA-Public Use
  Company Number: None

PATIENT
  Sex: Female
  Weight: 82.1 kg

DRUGS (2)
  1. VIMPAT [Suspect]
     Indication: COMPLEX PARTIAL SEIZURES
     Route: 048
  2. VIMPAT [Suspect]
     Route: 048

REACTIONS (4)
  - Vision blurred [None]
  - Gait disturbance [None]
  - Dizziness [None]
  - Gait disturbance [None]
